FAERS Safety Report 17751648 (Version 1)
Quarter: 2020Q2

REPORT INFORMATION
  Report Type: Spontaneous
  Country: US (occurrence: US)
  Receive Date: 20200506
  Receipt Date: 20200506
  Transmission Date: 20200714
  Serious: No
  Sender: FDA-Public Use
  Company Number: US-PFIZER INC-2019155912

PATIENT
  Age: 62 Year
  Sex: Female
  Weight: 113.4 kg

DRUGS (5)
  1. DILANTIN [Suspect]
     Active Substance: PHENYTOIN
     Indication: SEIZURE
     Dosage: 700 MG, DAILY
  2. DILANTIN [Suspect]
     Active Substance: PHENYTOIN
     Dosage: UNK, DAILY (TAKING LESS THAN PRESCRIBED)
  3. DILANTIN [Suspect]
     Active Substance: PHENYTOIN
     Dosage: 600 MG, DAILY
     Route: 048
  4. GABAPENTIN. [Concomitant]
     Active Substance: GABAPENTIN
     Dosage: UNK
  5. LEVOTHYROXINE. [Concomitant]
     Active Substance: LEVOTHYROXINE
     Indication: THYROID DISORDER
     Dosage: 88 MG, DAILY
     Route: 048

REACTIONS (3)
  - Memory impairment [Unknown]
  - Intentional product use issue [Unknown]
  - Prescribed overdose [Unknown]
